FAERS Safety Report 24784463 (Version 1)
Quarter: 2024Q4

REPORT INFORMATION
  Report Type: Spontaneous
  Country: CN (occurrence: CN)
  Receive Date: 20241227
  Receipt Date: 20241227
  Transmission Date: 20250115
  Serious: Yes (Hospitalization, Other)
  Sender: RIGEL PHARMACEUTICALS
  Company Number: CN-RIGEL Pharmaceuticals INC-20241200142

PATIENT
  Age: 56 Year
  Sex: Male

DRUGS (2)
  1. GAVRETO [Suspect]
     Active Substance: PRALSETINIB
     Indication: Non-small cell lung cancer stage IIIA
     Dosage: 400 MILLIGRAM, QD
     Route: 048
     Dates: start: 202207
  2. GAVRETO [Suspect]
     Active Substance: PRALSETINIB
     Dosage: 200 MILLIGRAM, QD
     Route: 048
     Dates: end: 202306

REACTIONS (16)
  - Central nervous system infection [Unknown]
  - Bronchopulmonary aspergillosis [Recovering/Resolving]
  - Gait disturbance [Unknown]
  - Candida pneumonia [Recovering/Resolving]
  - Lung disorder [Recovering/Resolving]
  - Pericardial effusion [Unknown]
  - Pleural effusion [Unknown]
  - Dizziness [Unknown]
  - Pneumonia pseudomonal [Recovering/Resolving]
  - Pneumocystis jirovecii pneumonia [Recovering/Resolving]
  - Nausea [Unknown]
  - Vomiting [Unknown]
  - Pyrexia [Unknown]
  - Cough [Recovering/Resolving]
  - Productive cough [Recovering/Resolving]
  - General physical health deterioration [Unknown]

NARRATIVE: CASE EVENT DATE: 20230101
